FAERS Safety Report 14870879 (Version 2)
Quarter: 2018Q4

REPORT INFORMATION
  Report Type: Spontaneous
  Country: NL (occurrence: NL)
  Receive Date: 20180509
  Receipt Date: 20181003
  Transmission Date: 20190204
  Serious: Yes (Other)
  Sender: FDA-Public Use
  Company Number: NL-MYLANLABS-2018M1030615

PATIENT
  Age: 60 Year
  Sex: Female
  Weight: 74 kg

DRUGS (6)
  1. BISOPROLOLFUMARAAT MYLAN 1,25 MG, FILMOMHULDE TABLETTEN [Suspect]
     Active Substance: BISOPROLOL FUMARATE
     Dosage: HALF A PIL
     Dates: start: 20180407
  2. BISOPROLOLFUMARAAT MYLAN 1,25 MG, FILMOMHULDE TABLETTEN [Suspect]
     Active Substance: BISOPROLOL FUMARATE
     Dosage: 0.5 DF, UNK
  3. LISINOPRIL. [Concomitant]
     Active Substance: LISINOPRIL
     Indication: BLOOD PRESSURE ABNORMAL
     Dosage: UNK
     Dates: start: 20180227
  4. BISOPROLOLFUMARAAT MYLAN 1,25 MG, FILMOMHULDE TABLETTEN [Suspect]
     Active Substance: BISOPROLOL FUMARATE
     Dosage: 0.5 MG, QD
     Dates: start: 2018
  5. BISOPROLOLFUMARAAT MYLAN 1,25 MG, FILMOMHULDE TABLETTEN [Suspect]
     Active Substance: BISOPROLOL FUMARATE
     Indication: BLOOD PRESSURE ABNORMAL
     Dosage: 0.5 MG, QD
     Dates: start: 20180227
  6. LISINOPRIL. [Concomitant]
     Active Substance: LISINOPRIL
     Dosage: 2.5 MG, UNK

REACTIONS (2)
  - Blood pressure increased [Not Recovered/Not Resolved]
  - Heart rate decreased [Not Recovered/Not Resolved]

NARRATIVE: CASE EVENT DATE: 2018
